FAERS Safety Report 5604401-5 (Version None)
Quarter: 2008Q1

REPORT INFORMATION
  Report Type: 
  Country: None (occurrence: None)
  Receive Date: 20080128
  Receipt Date: 20080117
  Transmission Date: 20080703
  Serious: Yes (Other)
  Sender: FDA-Public Use
  Company Number: JP-JNJFOC-20080105112

PATIENT
  Age: 6 Decade
  Sex: Male

DRUGS (1)
  1. DUROTEP [Suspect]
     Indication: CANCER PAIN
     Route: 062

REACTIONS (2)
  - COMA [None]
  - DRUG EFFECT INCREASED [None]
